FAERS Safety Report 24071691 (Version 1)
Quarter: 2024Q3

REPORT INFORMATION
  Report Type: Report from Study
  Country: CL (occurrence: CL)
  Receive Date: 20240710
  Receipt Date: 20240710
  Transmission Date: 20241017
  Serious: No
  Sender: ROCHE
  Company Number: CL-ROCHE-3526867

PATIENT
  Age: 27 Year
  Sex: Female
  Weight: 60.0 kg

DRUGS (1)
  1. EVRYSDI [Suspect]
     Active Substance: RISDIPLAM
     Indication: Spinal muscular atrophy
     Dosage: STRENGTH: 60MG/80ML
     Route: 065
     Dates: start: 20240219

REACTIONS (4)
  - Abdominal pain upper [Not Recovered/Not Resolved]
  - Defaecation urgency [Unknown]
  - Anaemia [Unknown]
  - Vitamin D deficiency [Unknown]

NARRATIVE: CASE EVENT DATE: 20240302
